FAERS Safety Report 7243408-1 (Version None)
Quarter: 2011Q1

REPORT INFORMATION
  Report Type: 
  Country: None (occurrence: None)
  Receive Date: 20110125
  Receipt Date: 20110111
  Transmission Date: 20110831
  Serious: Yes (Life-Threatening, Hospitalization)
  Sender: FDA-Public Use
  Company Number: FR-ELI_LILLY_AND_COMPANY-FR201101002382

PATIENT
  Age: 65 Year
  Sex: Male

DRUGS (9)
  1. FLIXOTIDE [Concomitant]
     Dosage: 250 UG, UNKNOWN
     Route: 055
  2. NEXIUM [Concomitant]
     Dosage: 40 MG, DAILY (1/D)
     Route: 065
  3. AERIUS [Concomitant]
     Dosage: UNK, DAILY (1/D)
     Route: 065
  4. COVERSYL [Concomitant]
     Dosage: 2.5 UNK, 2/D
     Route: 065
  5. EFFIENT [Suspect]
     Indication: MYOCARDIAL INFARCTION
     Dosage: 10 MG, DAILY (1/D)
     Route: 048
     Dates: start: 20100905, end: 20101120
  6. CRESTOR [Concomitant]
     Dosage: 10 MG, DAILY (1/D)
     Route: 065
  7. FORADIL [Concomitant]
     Dosage: UNK, 2/D
     Route: 065
  8. TEMERIT [Concomitant]
     Dosage: 5 MG, 2/D
  9. ALLOPURINOL [Concomitant]
     Dosage: 100 MG, DAILY (1/D)
     Route: 065

REACTIONS (2)
  - SUBDURAL HAEMATOMA [None]
  - HEMIPARESIS [None]
